FAERS Safety Report 10695918 (Version 3)
Quarter: 2015Q1

REPORT INFORMATION
  Report Type: Spontaneous
  Country: US (occurrence: US)
  Receive Date: 20150107
  Receipt Date: 20150216
  Transmission Date: 20150721
  Serious: No
  Sender: FDA-Public Use
  Company Number: US-PFIZER INC-2015004929

PATIENT
  Age: 60 Year
  Sex: Female

DRUGS (1)
  1. LYRICA [Suspect]
     Active Substance: PREGABALIN
     Indication: DIABETIC NEUROPATHY
     Dosage: 100 MG, 2X/DAY
     Dates: start: 2006

REACTIONS (10)
  - Insomnia [Not Recovered/Not Resolved]
  - Mood swings [Unknown]
  - Drug effect incomplete [Unknown]
  - Anxiety [Not Recovered/Not Resolved]
  - Asthma [Unknown]
  - Ear pain [Unknown]
  - Dizziness [Unknown]
  - Tendon disorder [Unknown]
  - Anger [Unknown]
  - Irritability [Not Recovered/Not Resolved]

NARRATIVE: CASE EVENT DATE: 201401
